FAERS Safety Report 4698555-5 (Version None)
Quarter: 2005Q2

REPORT INFORMATION
  Report Type: 
  Country: None (occurrence: None)
  Receive Date: 20050622
  Receipt Date: 20050607
  Transmission Date: 20051028
  Serious: Yes (Hospitalization)
  Sender: FDA-Public Use
  Company Number: 0205019

PATIENT
  Age: 56 Year
  Sex: Male
  Weight: 83.6 kg

DRUGS (3)
  1. DEPODUR [Suspect]
     Indication: ANALGESIC EFFECT
     Dosage: 20 MG (ONCE), EPIDURAL
     Route: 008
     Dates: start: 20050525, end: 20050525
  2. TORADOL [Concomitant]
  3. MORPHINE (MORPHINE) (INJECTION) [Concomitant]

REACTIONS (7)
  - BLOOD PH DECREASED [None]
  - LETHARGY [None]
  - NAUSEA [None]
  - PCO2 INCREASED [None]
  - PO2 DECREASED [None]
  - POST PROCEDURAL COMPLICATION [None]
  - RESPIRATORY DEPRESSION [None]
